FAERS Safety Report 6162770-4 (Version None)
Quarter: 2009Q2

REPORT INFORMATION
  Report Type: 
  Country: None (occurrence: None)
  Receive Date: 20090421
  Receipt Date: 20080616
  Transmission Date: 20091009
  Serious: No
  Sender: FDA-Public Use
  Company Number: US-ASTRAZENECA-2008UW12113

PATIENT
  Sex: Female

DRUGS (1)
  1. TOPROL-XL [Suspect]
     Indication: CARDIAC FAILURE
     Route: 048

REACTIONS (2)
  - BLOOD PRESSURE ABNORMAL [None]
  - DRUG INEFFECTIVE [None]
